FAERS Safety Report 21091805 (Version 1)
Quarter: 2022Q3

REPORT INFORMATION
  Report Type: Spontaneous
  Country: US (occurrence: US)
  Receive Date: 20220717
  Receipt Date: 20220717
  Transmission Date: 20221027
  Serious: No
  Sender: FDA-Public Use
  Company Number: US-SA-SAC20220714000645

PATIENT
  Age: 67 Year
  Sex: Female

DRUGS (19)
  1. DUPIXENT [Suspect]
     Active Substance: DUPILUMAB
     Indication: Asthma
     Dosage: 200 MG, QOW (DATE OF THERAPY: ON MEDICINE FOR 2 YEARS)
     Route: 058
     Dates: start: 2020
  2. DULERA [Concomitant]
     Active Substance: FORMOTEROL FUMARATE DIHYDRATE\MOMETASONE FUROATE
     Dosage: UNK (DULERA AER 100-5MCG/ACT)
  3. GABAPENTIN [Concomitant]
     Active Substance: GABAPENTIN
  4. LEVAQUIN [Concomitant]
     Active Substance: LEVOFLOXACIN
  5. TYLENOL [Concomitant]
     Active Substance: ACETAMINOPHEN
  6. ADVAIR HFA [Concomitant]
     Active Substance: FLUTICASONE PROPIONATE\SALMETEROL XINAFOATE
     Dosage: UNK (ADVAIR DISKU AEP 100-50MC)
  7. AMLODIPINE BESYLATE [Concomitant]
     Active Substance: AMLODIPINE BESYLATE
  8. AZITHROMYCIN [Concomitant]
     Active Substance: AZITHROMYCIN
  9. BRISDELLE [Concomitant]
     Active Substance: PAROXETINE MESYLATE
  10. NYSTATIN [Concomitant]
     Active Substance: NYSTATIN
     Dosage: UNK (100000UNIT/M)
  11. SIMVASTATIN [Concomitant]
     Active Substance: SIMVASTATIN
  12. THEOPHYLLINE [Concomitant]
     Active Substance: THEOPHYLLINE
  13. ZOLPIDEM [Concomitant]
     Active Substance: ZOLPIDEM TARTRATE
  14. TRAMADOL HCL [Concomitant]
     Active Substance: TRAMADOL HYDROCHLORIDE
  15. PREDNISONE [Concomitant]
     Active Substance: PREDNISONE
  16. PAROXETINE [Concomitant]
     Active Substance: PAROXETINE
  17. CEPHALEXIN [Concomitant]
     Active Substance: CEPHALEXIN
  18. CYCLOBENZAPRINE [Concomitant]
     Active Substance: CYCLOBENZAPRINE
     Dosage: UNK (CYCLOBENZAPR TAB NORCO TAB 7.5-325MG)
  19. ALBUTEROL [Concomitant]
     Active Substance: ALBUTEROL

REACTIONS (5)
  - Joint swelling [Not Recovered/Not Resolved]
  - Lung disorder [Not Recovered/Not Resolved]
  - Breath sounds abnormal [Not Recovered/Not Resolved]
  - Arthralgia [Not Recovered/Not Resolved]
  - Sleep disorder [Not Recovered/Not Resolved]

NARRATIVE: CASE EVENT DATE: 20220711
